FAERS Safety Report 5810322-5 (Version None)
Quarter: 2008Q3

REPORT INFORMATION
  Report Type: 
  Country: None (occurrence: None)
  Receive Date: 20080715
  Receipt Date: 20080416
  Transmission Date: 20090109
  Serious: No
  Sender: FDA-Public Use
  Company Number: A0721621A

PATIENT
  Age: 17 Year
  Sex: Male

DRUGS (3)
  1. IMITREX [Suspect]
     Indication: MIGRAINE
     Dosage: 50MG AS REQUIRED
     Route: 048
  2. PROZAC [Concomitant]
  3. TOPAMAX [Concomitant]

REACTIONS (2)
  - SWELLING [None]
  - URTICARIA [None]
